FAERS Safety Report 15406996 (Version 1)
Quarter: 2018Q3

REPORT INFORMATION
  Report Type: Spontaneous
  Country: US (occurrence: US)
  Receive Date: 20180918
  Receipt Date: 20180918
  Transmission Date: 20181010
  Serious: No
  Sender: FDA-Public Use
  Company Number: None

PATIENT
  Sex: Female

DRUGS (2)
  1. DARVOCET [Suspect]
     Active Substance: ACETAMINOPHEN\PROPOXYPHENE HYDROCHLORIDE
  2. GLUCOSANO (DIETARY SUPPLEMENT) [Suspect]
     Active Substance: DIETARY SUPPLEMENT

REACTIONS (3)
  - Nausea [None]
  - Vomiting [None]
  - Rash [None]
